FAERS Safety Report 15143381 (Version 8)
Quarter: 2021Q3

REPORT INFORMATION
  Report Type: Spontaneous
  Country: DE (occurrence: DE)
  Receive Date: 20180713
  Receipt Date: 20210814
  Transmission Date: 20211014
  Serious: Yes (Hospitalization, Other)
  Sender: FDA-Public Use
  Company Number: DE-AUROBINDO-AUR-APL-2017-47500

PATIENT
  Age: 62 Year
  Sex: Male
  Weight: 70 kg

DRUGS (34)
  1. FOLINIC ACID [Suspect]
     Active Substance: LEUCOVORIN
     Indication: COLORECTAL CANCER
     Dosage: 1 DF, Q2WK (362?364 MG)
     Route: 042
     Dates: start: 20151228, end: 20161107
  2. OXALIPLATIN. [Suspect]
     Active Substance: OXALIPLATIN
     Indication: COLORECTAL CANCER METASTATIC
     Dosage: 123.76 OR 122 MG (1 IN 2 WK), 307.7 MG FOR 1 WEEK
     Route: 042
     Dates: start: 20151228
  3. PEGFILGRASTIM [Suspect]
     Active Substance: PEGFILGRASTIM
     Indication: NEUTROPENIA
     Dosage: 12 MILLIGRAM, EVERY WEEK
     Route: 042
     Dates: start: 20151228
  4. PEGFILGRASTIM [Suspect]
     Active Substance: PEGFILGRASTIM
     Dosage: 6 MILLIGRAM, 14 DAYS
     Route: 042
     Dates: start: 20151228
  5. BISOPROLOL [Concomitant]
     Active Substance: BISOPROLOL
     Indication: HYPERTENSION
     Dosage: 5 MILLIGRAM, ONCE A DAY
     Route: 048
  6. IRINOTECAN [Suspect]
     Active Substance: IRINOTECAN
     Dosage: 298.65 MILLIGRAM Q2WK
     Route: 042
     Dates: start: 20151228
  7. AVASTIN [Suspect]
     Active Substance: BEVACIZUMAB
     Dosage: 710 MG, QWK
     Route: 042
     Dates: start: 20160404
  8. AVASTIN [Suspect]
     Active Substance: BEVACIZUMAB
     Dosage: 710 MILLIGRAM, EVERY WEEK
     Route: 042
     Dates: start: 20161024
  9. AVASTIN [Suspect]
     Active Substance: BEVACIZUMAB
     Dosage: 350 MILLIGRAM, 2 WEEKS
     Route: 042
     Dates: start: 20161024
  10. 5?FLUOROURACIL [Suspect]
     Active Substance: FLUOROURACIL
     Dosage: 1448 MILLIGRAM, EVERY WEEK (724 MG, 2 TIMES/WK (4344?5792 MG))
     Route: 040
     Dates: start: 20160829, end: 20161107
  11. DEXAMETHASON [Concomitant]
     Active Substance: DEXAMETHASONE
     Indication: NAUSEA
     Dosage: 8 MILLIGRAM, BEFORE CHEMOTHERAPY
     Route: 042
     Dates: start: 20151228
  12. BEVACIZUMAB. [Concomitant]
     Active Substance: BEVACIZUMAB
     Dosage: 355 MILLIGRAM, 2 WEEK
     Route: 042
     Dates: start: 20160404
  13. FOLINIC ACID [Suspect]
     Active Substance: LEUCOVORIN
     Dosage: 2 DF, Q2WK (362?364 MG)
     Route: 042
     Dates: start: 20151228, end: 20161107
  14. OXALIPLATIN. [Suspect]
     Active Substance: OXALIPLATIN
     Dosage: 123.76 MILLIGRAM, 122 MG, Q2W, 244 MG FOR 1 WEEK
     Route: 042
     Dates: start: 20160815
  15. OXALIPLATIN. [Suspect]
     Active Substance: OXALIPLATIN
     Dosage: 244 MG, QWK
     Route: 042
     Dates: start: 20160509
  16. OXALIPLATIN. [Suspect]
     Active Substance: OXALIPLATIN
     Dosage: 122 MILLIGRAM, 2 WEEKS
     Route: 042
     Dates: start: 20160509
  17. AVASTIN [Suspect]
     Active Substance: BEVACIZUMAB
     Dosage: 710 MILLIGRAM, EVERY WEEK
     Route: 042
     Dates: start: 20060404
  18. 5?FLUOROURACIL [Suspect]
     Active Substance: FLUOROURACIL
     Indication: COLORECTAL CANCER METASTATIC
     Dosage: 64 DF, QWK (DOSE RANGE 4344? 5792 MG)
     Route: 040
     Dates: start: 20151228, end: 20160511
  19. PANTOPRAZOL [Concomitant]
     Active Substance: PANTOPRAZOLE SODIUM
     Indication: PRODUCT USED FOR UNKNOWN INDICATION
     Dosage: 40 MILLIGRAM, ONCE A DAY
     Route: 048
     Dates: start: 20160619
  20. AVASTIN [Suspect]
     Active Substance: BEVACIZUMAB
     Dosage: 700 MILLIGRAM, EVERY WEEK (350 MG, 2 TIMES/WK)
     Route: 042
     Dates: start: 20151228
  21. BEVACIZUMAB. [Concomitant]
     Active Substance: BEVACIZUMAB
     Indication: COLORECTAL CANCER METASTATIC
     Dosage: 350 MILLIGRAM, 2WEEK
     Route: 042
     Dates: start: 20151228
  22. OXALIPLATIN. [Suspect]
     Active Substance: OXALIPLATIN
     Dosage: 244 MG, QWK (123.76 MG, Q2W)
     Route: 042
     Dates: start: 20160815
  23. OXALIPLATIN. [Suspect]
     Active Substance: OXALIPLATIN
     Dosage: 153.85 MILLIGRAM Q2WK (123.76 OR 122 MG)
     Route: 042
     Dates: start: 20151228
  24. IRINOTECAN [Suspect]
     Active Substance: IRINOTECAN
     Indication: COLORECTAL CANCER METASTATIC
     Dosage: 597.3 MILLIGRAM, EVERY WEEK
     Route: 042
     Dates: start: 20161107
  25. AVASTIN [Suspect]
     Active Substance: BEVACIZUMAB
     Indication: COLORECTAL CANCER METASTATIC
     Dosage: 700 MILLIGRAM, EVERY WEEK (350 MG, 2 TIMES/WK)
     Route: 042
     Dates: start: 20151228
  26. 5?FLUOROURACIL [Suspect]
     Active Substance: FLUOROURACIL
     Dosage: 724 MG, Q2WK (4344?5792 MG)
     Route: 040
     Dates: start: 20160829, end: 20161107
  27. OXALIPLATIN. [Suspect]
     Active Substance: OXALIPLATIN
     Dosage: 123.76 MG, Q2WK
     Route: 042
     Dates: start: 20160509
  28. AVASTIN [Suspect]
     Active Substance: BEVACIZUMAB
     Dosage: 355 MILLIGRAM, Q2WK
     Route: 042
     Dates: start: 20160404
  29. 5?FLUOROURACIL [Suspect]
     Active Substance: FLUOROURACIL
     Dosage: 1 DOSAGE FORM, 2 WEEK, 1 DF, Q2WK (4344?5792 MG)
     Route: 040
     Dates: start: 20151228, end: 20160511
  30. ONDANSETRON [Concomitant]
     Active Substance: ONDANSETRON
     Indication: NAUSEA
     Dosage: 6 MILLIGRAM, ONCE A DAY
     Route: 042
     Dates: start: 20151228
  31. ONDANSETRON [Concomitant]
     Active Substance: ONDANSETRON
     Dosage: 8 MILLIGRAM, ONCE A DAY
     Route: 042
     Dates: start: 20151228
  32. IRINOTECAN [Suspect]
     Active Substance: IRINOTECAN
     Indication: OFF LABEL USE
     Dosage: 597.3 MILLIGRAM, EVERY WEEK
     Route: 042
     Dates: start: 20151228
  33. IRINOTECAN [Suspect]
     Active Substance: IRINOTECAN
     Dosage: 326 MG, Q2WK
     Route: 042
     Dates: start: 20161107
  34. BEVACIZUMAB. [Concomitant]
     Active Substance: BEVACIZUMAB
     Dosage: 350 MILLIGRAM, 2 WEEK
     Route: 042
     Dates: start: 20161024

REACTIONS (3)
  - Liver abscess [Recovered/Resolved]
  - Perihepatic abscess [Recovered/Resolved]
  - Off label use [Unknown]

NARRATIVE: CASE EVENT DATE: 20160622
